FAERS Safety Report 9837312 (Version 1)
Quarter: 2013Q4

REPORT INFORMATION
  Report Type: Spontaneous
  Country: US (occurrence: None)
  Receive Date: 20131205
  Receipt Date: 20131205
  Transmission Date: 20140711
  Serious: Yes (Other)
  Sender: FDA-Public Use
  Company Number: 163-POMAL-13100727

PATIENT
  Age: 75 Year
  Sex: Male

DRUGS (3)
  1. POMALYST (POMALIDOMIDE) (3 MILLIGRAM, CAPSULES) [Suspect]
     Indication: PLASMA CELL MYELOMA
     Dosage: 3 MG, 1 IN 1 D, PO
     Route: 048
     Dates: start: 201308, end: 201310
  2. DEXAMETHASONE (DEXAMETHASONE) (UNKNOWN) [Concomitant]
  3. PARKINSON MEDS (ANTI-PARKINSON DRUGS) (UNKNOWN) [Concomitant]

REACTIONS (5)
  - Gait disturbance [None]
  - Speech disorder [None]
  - Fatigue [None]
  - Dizziness [None]
  - Light chain analysis increased [None]
